FAERS Safety Report 5155462-1 (Version None)
Quarter: 2006Q4

REPORT INFORMATION
  Report Type: 
  Country: None (occurrence: None)
  Receive Date: 20061114
  Receipt Date: 20061025
  Transmission Date: 20070319
  Serious: Yes (Other)
  Sender: FDA-Public Use
  Company Number: US-2006-032370

PATIENT
  Age: 62 Year
  Sex: Female

DRUGS (1)
  1. BETASERON [Suspect]
     Indication: MULTIPLE SCLEROSIS
     Dosage: 8 MIU  EVERY 2D, SUBCUTANEOUS
     Route: 058
     Dates: start: 20021028

REACTIONS (4)
  - COLON CANCER [None]
  - FATIGUE [None]
  - GAIT DISTURBANCE [None]
  - HERNIA REPAIR [None]
